FAERS Safety Report 7019585-4 (Version None)
Quarter: 2010Q3

REPORT INFORMATION
  Report Type: 
  Country: None (occurrence: None)
  Receive Date: 20100928
  Receipt Date: 20100928
  Transmission Date: 20110219
  Serious: No
  Sender: FDA-Public Use
  Company Number: None

PATIENT
  Age: 67 Year
  Sex: Male
  Weight: 88.4514 kg

DRUGS (1)
  1. ACIPHEX [Suspect]

REACTIONS (10)
  - CONDITION AGGRAVATED [None]
  - COW'S MILK INTOLERANCE [None]
  - DEPRESSION [None]
  - DIVERTICULITIS [None]
  - FOOD INTOLERANCE [None]
  - GASTRIC DISORDER [None]
  - INCORRECT DRUG ADMINISTRATION DURATION [None]
  - IRRITABLE BOWEL SYNDROME [None]
  - PALPITATIONS [None]
  - WITHDRAWAL SYNDROME [None]
